FAERS Safety Report 19800046 (Version 9)
Quarter: 2022Q3

REPORT INFORMATION
  Report Type: Report from Study
  Country: CA (occurrence: CA)
  Receive Date: 20210907
  Receipt Date: 20220728
  Transmission Date: 20221026
  Serious: Yes (Other)
  Sender: FDA-Public Use
  Company Number: CA-MYLANLABS-2021M1058479

PATIENT
  Age: 89 Year
  Sex: Female
  Weight: 66 kg

DRUGS (3)
  1. HULIO [Suspect]
     Active Substance: ADALIMUMAB-FKJP
     Indication: Psoriatic arthropathy
     Dosage: 40 MILLIGRAM, Q2W ( EVERY OTHER WEEK)
     Route: 058
  2. HULIO [Suspect]
     Active Substance: ADALIMUMAB-FKJP
     Indication: Rheumatoid arthritis
     Dosage: 40 MILLIGRAM
     Route: 065
  3. HULIO [Suspect]
     Active Substance: ADALIMUMAB-FKJP
     Dosage: 40 MILLIGRAM, Q2W ( EVERY OTHER WEEK)
     Route: 058

REACTIONS (13)
  - Psoriatic arthropathy [Unknown]
  - Vein rupture [Unknown]
  - Skin papilloma [Not Recovered/Not Resolved]
  - Arthralgia [Unknown]
  - Peripheral swelling [Unknown]
  - Pain in extremity [Unknown]
  - Contusion [Unknown]
  - Psoriasis [Unknown]
  - Injection site mass [Unknown]
  - Injection site discomfort [Unknown]
  - Inappropriate schedule of product administration [Not Recovered/Not Resolved]
  - Product dose omission issue [Unknown]
  - Off label use [Unknown]

NARRATIVE: CASE EVENT DATE: 20210827
